FAERS Safety Report 5869050-2 (Version None)
Quarter: 2008Q3

REPORT INFORMATION
  Report Type: 
  Country: None (occurrence: None)
  Receive Date: 20080903
  Receipt Date: 20080901
  Transmission Date: 20090109
  Serious: Yes (Death, Hospitalization)
  Sender: FDA-Public Use
  Company Number: B0531909A

PATIENT
  Age: 47 Year
  Sex: Female

DRUGS (7)
  1. FLOLAN [Suspect]
     Indication: COLLAGEN DISORDER
     Route: 042
     Dates: start: 20050831, end: 20060303
  2. FUROSEMIDE [Concomitant]
  3. DOBUTAMINE HCL [Concomitant]
     Route: 042
  4. TRACLEER [Concomitant]
     Route: 048
  5. INOVAN [Concomitant]
     Route: 042
  6. VIAGRA [Concomitant]
     Route: 048
  7. PREDONINE [Concomitant]
     Route: 048

REACTIONS (6)
  - ASCITES [None]
  - CARDIAC FAILURE [None]
  - DEPRESSED LEVEL OF CONSCIOUSNESS [None]
  - HYPERPLASIA [None]
  - PLATELET COUNT DECREASED [None]
  - SUDDEN DEATH [None]
